FAERS Safety Report 11326299 (Version 2)
Quarter: 2015Q3

REPORT INFORMATION
  Report Type: Spontaneous
  Country: MO (occurrence: MO)
  Receive Date: 20150731
  Receipt Date: 20150908
  Transmission Date: 20151125
  Serious: Yes (Other)
  Sender: FDA-Public Use
  Company Number: MO-AMGEN-MACSP2015076746

PATIENT
  Age: 54 Year
  Sex: Female

DRUGS (2)
  1. NESP [Suspect]
     Active Substance: DARBEPOETIN ALFA
     Indication: NEPHROGENIC ANAEMIA
     Dosage: 100 MUG, Q2WK
     Route: 042
     Dates: start: 20080124
  2. METHOXY POLYETHYLENE GLYCOL-EPOETIN BETA [Concomitant]
     Active Substance: METHOXY POLYETHYLENE GLYCOL-EPOETIN BETA
     Dosage: UNK, Q2WK
     Route: 042
     Dates: start: 20141015, end: 20150624

REACTIONS (2)
  - Refractory cytopenia with unilineage dysplasia [Unknown]
  - Transfusion [Unknown]

NARRATIVE: CASE EVENT DATE: 201505
